FAERS Safety Report 8522810-1 (Version None)
Quarter: 2012Q3

REPORT INFORMATION
  Report Type: 
  Country: None (occurrence: None)
  Receive Date: 20120720
  Receipt Date: 20120706
  Transmission Date: 20120928
  Serious: Yes (Other)
  Sender: FDA-Public Use
  Company Number: BR-AMGEN-BRASP2012040936

PATIENT
  Age: 43 Year
  Sex: Female
  Weight: 33 kg

DRUGS (7)
  1. VOLTAREN [Concomitant]
     Dosage: UNK
  2. NEXIUM                             /01479303/ [Concomitant]
     Dosage: UNK UNK, UNK
  3. CALCORT [Concomitant]
     Dosage: UNK UNK, UNK
  4. VOLTAREN [Concomitant]
  5. ENBREL [Suspect]
     Indication: RHEUMATOID ARTHRITIS
     Dosage: 50 MG, ONCE WEEKLY
     Route: 058
     Dates: start: 20090801, end: 20120601
  6. ABLOK PLUS [Concomitant]
     Dosage: UNK UNK, UNK
  7. NEXIUM [Concomitant]

REACTIONS (1)
  - EYE HAEMORRHAGE [None]
